FAERS Safety Report 8125251-4 (Version None)
Quarter: 2012Q1

REPORT INFORMATION
  Report Type: 
  Country: None (occurrence: None)
  Receive Date: 20120209
  Receipt Date: 20120126
  Transmission Date: 20120608
  Serious: Yes (Other)
  Sender: FDA-Public Use
  Company Number: US-UCBSA-039131

PATIENT
  Age: 36 Year
  Sex: Female
  Weight: 84.37 kg

DRUGS (3)
  1. MULTI-VITAMINS [Concomitant]
     Indication: PREGNANCY
     Route: 048
     Dates: start: 20100217
  2. WELLBUTRIN [Concomitant]
  3. CIMZIA [Suspect]
     Indication: CROHN'S DISEASE
     Dosage: MONTHLY
     Route: 058
     Dates: start: 20090728

REACTIONS (7)
  - BREAST TENDERNESS [None]
  - ABORTION SPONTANEOUS [None]
  - PAIN [None]
  - CONSTIPATION [None]
  - NAUSEA [None]
  - PAROSMIA [None]
  - PREGNANCY [None]
